FAERS Safety Report 5382963-3 (Version None)
Quarter: 2007Q3

REPORT INFORMATION
  Report Type: 
  Country: None (occurrence: None)
  Receive Date: 20070710
  Receipt Date: 20070705
  Transmission Date: 20080115
  Serious: Yes (Hospitalization)
  Sender: FDA-Public Use
  Company Number: A0661911A

PATIENT
  Sex: Female

DRUGS (2)
  1. COREG CR [Suspect]
     Dosage: 80MG SINGLE DOSE
     Route: 048
     Dates: start: 20070703, end: 20070703
  2. COREG [Suspect]
     Route: 048

REACTIONS (4)
  - BLOOD PRESSURE DECREASED [None]
  - CARDIAC ARREST [None]
  - HYPERHIDROSIS [None]
  - LOSS OF CONSCIOUSNESS [None]
